FAERS Safety Report 21697697 (Version 1)
Quarter: 2022Q4

REPORT INFORMATION
  Report Type: Report from Study
  Country: US (occurrence: US)
  Receive Date: 20221208
  Receipt Date: 20221208
  Transmission Date: 20230112
  Serious: No
  Sender: FDA-Public Use
  Company Number: US-ABBVIE-4225793

PATIENT
  Sex: Male

DRUGS (2)
  1. VENCLEXTA [Suspect]
     Active Substance: VENETOCLAX
     Indication: Mantle cell lymphoma
     Dosage: TIME INTERVAL: 0.125 DAYS: FORM STRENGTH: 100 MILLIGRAM?FREQUENCY TEXT: 8 TABS A DAY
     Route: 048
  2. VENCLEXTA [Suspect]
     Active Substance: VENETOCLAX
     Indication: Mantle cell lymphoma
     Dosage: FORM STRENGTH: 100 MILLIGRAM?FREQUENCY TEXT: 4 TABS A DAY
     Route: 048

REACTIONS (2)
  - Off label use [Unknown]
  - Product prescribing issue [Unknown]
